FAERS Safety Report 19470798 (Version 1)
Quarter: 2021Q2

REPORT INFORMATION
  Report Type: Spontaneous
  Country: US (occurrence: US)
  Receive Date: 20210628
  Receipt Date: 20210628
  Transmission Date: 20210717
  Serious: Yes (Life-Threatening)
  Sender: FDA-Public Use
  Company Number: None

PATIENT
  Age: 52 Year
  Sex: Male

DRUGS (1)
  1. CAPECITABINE TAB 500MG [Suspect]
     Active Substance: CAPECITABINE
     Indication: COLON CANCER
     Route: 048
     Dates: start: 202106

REACTIONS (5)
  - Dehydration [None]
  - Fatigue [None]
  - Weight decreased [None]
  - Thrombosis [None]
  - Nausea [None]

NARRATIVE: CASE EVENT DATE: 20210528
